FAERS Safety Report 8321483-0 (Version None)
Quarter: 2012Q2

REPORT INFORMATION
  Report Type: 
  Country: None (occurrence: None)
  Receive Date: 20120430
  Receipt Date: 20120430
  Transmission Date: 20120825
  Serious: Yes (Disabling)
  Sender: FDA-Public Use
  Company Number: None

PATIENT
  Age: 68 Year
  Sex: Female
  Weight: 53.523 kg

DRUGS (1)
  1. BYSTOLIC [Suspect]
     Indication: TACHYCARDIA
     Dosage: 5MG
     Route: 048
     Dates: start: 20120120, end: 20120419

REACTIONS (5)
  - MICTURITION FREQUENCY DECREASED [None]
  - OEDEMA PERIPHERAL [None]
  - SWELLING FACE [None]
  - WEIGHT INCREASED [None]
  - URINE OUTPUT DECREASED [None]
